FAERS Safety Report 17206208 (Version 1)
Quarter: 2019Q4

REPORT INFORMATION
  Report Type: Other
  Country: CA (occurrence: CA)
  Receive Date: 20191227
  Receipt Date: 20191227
  Transmission Date: 20200122
  Serious: Yes (Hospitalization, Other)
  Sender: FDA-Public Use
  Company Number: CA-APOTEX-2019AP026474

PATIENT
  Age: 66 Year
  Sex: Male

DRUGS (6)
  1. CANDESARTAN HCT [Concomitant]
     Active Substance: CANDESARTAN CILEXETIL\HYDROCHLOROTHIAZIDE
     Indication: PRODUCT USED FOR UNKNOWN INDICATION
     Dosage: UNK
     Route: 065
  2. RAMIPRIL. [Suspect]
     Active Substance: RAMIPRIL
     Indication: MYOCARDIAL INFARCTION
     Dosage: 25 MG, BID
     Route: 065
  3. SANDOSTATIN [Suspect]
     Active Substance: OCTREOTIDE ACETATE
     Indication: NEUROENDOCRINE TUMOUR
     Dosage: 10.0 MG, Q.M.T.
     Route: 030
  4. BUPROPION. [Concomitant]
     Active Substance: BUPROPION
     Indication: EMOTIONAL DISORDER
     Dosage: UNK
     Route: 065
  5. RAMIPRIL. [Suspect]
     Active Substance: RAMIPRIL
     Dosage: 20 MG, QD
     Route: 065
  6. HYDROCHLOROTHIAZIDE. [Concomitant]
     Active Substance: HYDROCHLOROTHIAZIDE
     Indication: PRODUCT USED FOR UNKNOWN INDICATION
     Dosage: 25 MG, QD
     Route: 065

REACTIONS (20)
  - Pyrexia [Unknown]
  - Abdominal lymphadenopathy [Unknown]
  - Arterial occlusive disease [Unknown]
  - Urinary tract infection [Unknown]
  - Chills [Unknown]
  - Heart rate increased [Unknown]
  - Blood potassium decreased [Unknown]
  - Ejection fraction decreased [Unknown]
  - Heart rate decreased [Unknown]
  - Vomiting [Unknown]
  - Chest pain [Unknown]
  - Renal impairment [Unknown]
  - Nausea [Unknown]
  - Visual impairment [Unknown]
  - Fatigue [Unknown]
  - Blood pressure increased [Unknown]
  - Injection site pain [Unknown]
  - Muscle spasms [Unknown]
  - Myocardial infarction [Unknown]
  - Influenza [Unknown]
